FAERS Safety Report 4281409-6 (Version None)
Quarter: 2004Q1

REPORT INFORMATION
  Report Type: 
  Country: None (occurrence: None)
  Receive Date: 20040112
  Receipt Date: 20031021
  Transmission Date: 20041129
  Serious: Yes (Other)
  Sender: FDA-Public Use
  Company Number: 349830

PATIENT
  Age: 44 Year
  Sex: Female
  Weight: 60.3 kg

DRUGS (2)
  1. FUZEON [Suspect]
     Indication: DRUG USE FOR UNKNOWN INDICATION
     Dosage: 90 MG 2 PER DAY, SUBCUTANEOUS
     Route: 058
     Dates: start: 20030818
  2. FUZEON [Suspect]
     Indication: DRUG USE FOR UNKNOWN INDICATION
     Dosage: 0.9 CC SUBCUTANEOUS
     Route: 058

REACTIONS (6)
  - ABDOMINAL DISTENSION [None]
  - ADVERSE EVENT [None]
  - INJECTION SITE REACTION [None]
  - MEDICATION ERROR [None]
  - PRURITUS [None]
  - SWELLING [None]
